FAERS Safety Report 7606857-5 (Version None)
Quarter: 2011Q3

REPORT INFORMATION
  Report Type: 
  Country: None (occurrence: None)
  Receive Date: 20110713
  Receipt Date: 20110706
  Transmission Date: 20111222
  Serious: Yes (Death)
  Sender: FDA-Public Use
  Company Number: US-GLAXOSMITHKLINE-A0936413A

PATIENT
  Age: 62 Year
  Sex: Female

DRUGS (1)
  1. TYKERB [Suspect]
     Dosage: 250MG UNKNOWN
     Route: 065
     Dates: start: 20100812, end: 20110501

REACTIONS (1)
  - DEATH [None]
